FAERS Safety Report 19141300 (Version 1)
Quarter: 2021Q2

REPORT INFORMATION
  Report Type: Spontaneous
  Country: US (occurrence: US)
  Receive Date: 20210415
  Receipt Date: 20210415
  Transmission Date: 20210717
  Serious: Yes (Hospitalization, Other)
  Sender: FDA-Public Use
  Company Number: US-SA-2021SA114394

PATIENT
  Age: 89 Year
  Sex: Male
  Weight: 70.31 kg

DRUGS (2)
  1. HUMIRA [Suspect]
     Active Substance: ADALIMUMAB
     Indication: RHEUMATOID ARTHRITIS
     Route: 058
  2. PLAVIX [Suspect]
     Active Substance: CLOPIDOGREL BISULFATE
     Indication: CARDIAC DISORDER

REACTIONS (10)
  - Fall [Unknown]
  - Peripheral artery stent insertion [Unknown]
  - Hypertension [Unknown]
  - Contusion [Unknown]
  - Coronary arterial stent insertion [Unknown]
  - Cardiac disorder [Unknown]
  - Myocardial infarction [Not Recovered/Not Resolved]
  - Diabetes mellitus [Unknown]
  - Post procedural swelling [Not Recovered/Not Resolved]
  - Loss of personal independence in daily activities [Unknown]

NARRATIVE: CASE EVENT DATE: 2011
